FAERS Safety Report 11174010 (Version 1)
Quarter: 2015Q2

REPORT INFORMATION
  Report Type: Spontaneous
  Country: None (occurrence: None)
  Receive Date: 20150605
  Receipt Date: 20150605
  Transmission Date: 20150821
  Serious: Yes (Hospitalization)
  Sender: FDA-Public Use
  Company Number: 2015060007

PATIENT
  Age: 70 Year
  Sex: Female

DRUGS (1)
  1. DYMISTA [Suspect]
     Active Substance: AZELASTINE HYDROCHLORIDE\FLUTICASONE PROPIONATE
     Indication: RHINITIS ALLERGIC
     Dosage: 2 DOSAGE FORMS, 2 IN 1 D
     Route: 045
     Dates: start: 201505, end: 201505

REACTIONS (2)
  - Generalised tonic-clonic seizure [None]
  - Refusal of treatment by patient [None]

NARRATIVE: CASE EVENT DATE: 201505
